FAERS Safety Report 9290099 (Version 1)
Quarter: 2013Q2

REPORT INFORMATION
  Report Type: Spontaneous
  Country: JP (occurrence: JP)
  Receive Date: 20130515
  Receipt Date: 20130515
  Transmission Date: 20140414
  Serious: Yes (Hospitalization, Other)
  Sender: FDA-Public Use
  Company Number: PHHY2013JP047918

PATIENT
  Sex: 0

DRUGS (1)
  1. EXELON PATCH [Suspect]
     Dosage: 18 MG, DAILY
     Route: 062
     Dates: end: 201304

REACTIONS (2)
  - Pneumonia [Unknown]
  - General physical health deterioration [Recovered/Resolved]
